FAERS Safety Report 8403452-5 (Version None)
Quarter: 2012Q2

REPORT INFORMATION
  Report Type: 
  Country: None (occurrence: None)
  Receive Date: 20120601
  Receipt Date: 20120522
  Transmission Date: 20120825
  Serious: Yes (Hospitalization, Other)
  Sender: FDA-Public Use
  Company Number: US-ROCHE-1042720

PATIENT
  Sex: Male
  Weight: 93.978 kg

DRUGS (2)
  1. XELODA [Suspect]
     Indication: RECTAL CANCER
     Route: 048
     Dates: start: 20111116
  2. OXALIPLATIN [Suspect]
     Indication: RECTAL CANCER
     Route: 042
     Dates: start: 20111206

REACTIONS (9)
  - DIARRHOEA [None]
  - SKIN EXFOLIATION [None]
  - VOMITING [None]
  - GASTRIC PERFORATION [None]
  - ERYTHEMA [None]
  - ABDOMINAL DISCOMFORT [None]
  - ENTERITIS [None]
  - NAUSEA [None]
  - SKIN FISSURES [None]
